FAERS Safety Report 4691801-3 (Version None)
Quarter: 2005Q2

REPORT INFORMATION
  Report Type: 
  Country: None (occurrence: None)
  Receive Date: 20050616
  Receipt Date: 20050606
  Transmission Date: 20051028
  Serious: Yes (Other)
  Sender: FDA-Public Use
  Company Number: BR-JNJFOC-20050602868

PATIENT
  Age: 36 Year
  Sex: Female
  Weight: 65 kg

DRUGS (3)
  1. ORTHO EVRA [Suspect]
     Indication: CONTRACEPTION
     Route: 062
     Dates: start: 20041201, end: 20050101
  2. FORASEQ [Concomitant]
  3. FORASEQ [Concomitant]
     Indication: ASTHMA

REACTIONS (7)
  - BLIGHTED OVUM [None]
  - DRUG EXPOSURE DURING PREGNANCY [None]
  - METRORRHAGIA [None]
  - NAUSEA [None]
  - NIPPLE DISORDER [None]
  - PHARMACEUTICAL PRODUCT COMPLAINT [None]
  - UNINTENDED PREGNANCY [None]
